FAERS Safety Report 7379720-5 (Version None)
Quarter: 2011Q1

REPORT INFORMATION
  Report Type: 
  Country: None (occurrence: None)
  Receive Date: 20110318
  Receipt Date: 20110307
  Transmission Date: 20110831
  Serious: Yes (Other)
  Sender: FDA-Public Use
  Company Number: 028901

PATIENT
  Sex: Male
  Weight: 108.8633 kg

DRUGS (6)
  1. LACOSAMIDE [Suspect]
     Indication: CONVULSION
     Dosage: 200 MG, BID, ORAL
     Route: 048
     Dates: start: 20100101
  2. CARBAMAZEPINE [Concomitant]
  3. CITALOPRAM [Concomitant]
  4. KEPPRA [Suspect]
     Indication: CONVULSION
     Dosage: 3000, 740 MG 2 TABLETS TWICE DAILY, ORAL
     Route: 048
     Dates: start: 20100501
  5. LANTUS [Concomitant]
  6. METFORMIN [Concomitant]

REACTIONS (3)
  - INAPPROPRIATE SCHEDULE OF DRUG ADMINISTRATION [None]
  - CONVULSION [None]
  - FALL [None]
